FAERS Safety Report 16056966 (Version 1)
Quarter: 2019Q1

REPORT INFORMATION
  Report Type: Spontaneous
  Country: US (occurrence: US)
  Receive Date: 20190311
  Receipt Date: 20190311
  Transmission Date: 20190418
  Serious: No
  Sender: FDA-Public Use
  Company Number: US-BAYER-2019-048972

PATIENT

DRUGS (4)
  1. ALEVE [Suspect]
     Active Substance: NAPROXEN SODIUM
  2. MORPHINE [Concomitant]
     Active Substance: MORPHINE
  3. NIACIN. [Concomitant]
     Active Substance: NIACIN
  4. LYRICA [Concomitant]
     Active Substance: PREGABALIN
     Indication: PROSTATE CANCER
     Dosage: UNK
     Dates: start: 20190115

REACTIONS (1)
  - Urticaria [Unknown]
